FAERS Safety Report 8045176-2 (Version None)
Quarter: 2012Q1

REPORT INFORMATION
  Report Type: 
  Country: None (occurrence: None)
  Receive Date: 20120113
  Receipt Date: 20111107
  Transmission Date: 20120608
  Serious: Yes (Hospitalization)
  Sender: FDA-Public Use
  Company Number: DE-ASTRAZENECA-2011SE68121

PATIENT
  Age: 69 Year
  Sex: Male

DRUGS (6)
  1. SEROQUEL XR [Suspect]
     Route: 048
     Dates: start: 20101001
  2. TAMSULOSIN HCL [Concomitant]
     Route: 048
     Dates: start: 20101201
  3. TAXILAN [Suspect]
     Route: 048
     Dates: start: 20110801, end: 20111010
  4. FLUANXOL DEPOT [Suspect]
     Route: 030
     Dates: start: 20111004, end: 20111004
  5. FLUANXOL [Suspect]
     Route: 048
     Dates: start: 20110930, end: 20111010
  6. OLMESARTAN MEDOXOMIL [Concomitant]
     Route: 048

REACTIONS (1)
  - URINARY RETENTION [None]
